FAERS Safety Report 10878284 (Version 1)
Quarter: 2015Q1

REPORT INFORMATION
  Report Type: Spontaneous
  Country: US (occurrence: US)
  Receive Date: 20150302
  Receipt Date: 20150302
  Transmission Date: 20150721
  Serious: No
  Sender: FDA-Public Use
  Company Number: US-ABBVIE-14P-163-1250644-00

PATIENT
  Age: 52 Year
  Sex: Female
  Weight: 57.66 kg

DRUGS (6)
  1. ANDROGEL [Suspect]
     Active Substance: TESTOSTERONE
     Indication: SEXUALLY ACTIVE
     Dosage: 2.5 GRAMS, 1 USE DIME SIZE
     Route: 061
     Dates: start: 201406, end: 201406
  2. ANDROGEL [Suspect]
     Active Substance: TESTOSTERONE
     Indication: MENOPAUSE
  3. PRIMROSE [Concomitant]
     Indication: HORMONE REPLACEMENT THERAPY
  4. MULTIVITAMIN [Concomitant]
     Active Substance: VITAMINS
     Indication: PRODUCT USED FOR UNKNOWN INDICATION
  5. ANDROGEL [Suspect]
     Active Substance: TESTOSTERONE
     Indication: BLOOD TESTOSTERONE DECREASED
  6. LEXAPRO [Concomitant]
     Active Substance: ESCITALOPRAM OXALATE
     Indication: PRODUCT USED FOR UNKNOWN INDICATION

REACTIONS (4)
  - Vulvovaginal burning sensation [Recovered/Resolved]
  - Product use issue [Not Recovered/Not Resolved]
  - Drug prescribing error [Not Recovered/Not Resolved]
  - Incorrect dose administered [Not Recovered/Not Resolved]

NARRATIVE: CASE EVENT DATE: 201406
